FAERS Safety Report 8572185-7 (Version None)
Quarter: 2012Q3

REPORT INFORMATION
  Report Type: 
  Country: None (occurrence: None)
  Receive Date: 20120806
  Receipt Date: 20120723
  Transmission Date: 20120928
  Serious: No
  Sender: FDA-Public Use
  Company Number: US-ASTRAZENECA-2012SE52259

PATIENT
  Age: 66 Year
  Sex: Female

DRUGS (4)
  1. SINGULAIR [Concomitant]
     Indication: MULTIPLE ALLERGIES
  2. CRESTOR [Suspect]
     Indication: LDL/HDL RATIO INCREASED
     Route: 048
  3. LOTREL [Concomitant]
     Indication: HYPERTENSION
  4. NORTRIPTYLINE HCL [Concomitant]
     Indication: MIGRAINE

REACTIONS (1)
  - TREMOR [None]
